FAERS Safety Report 25796260 (Version 1)
Quarter: 2025Q3

REPORT INFORMATION
  Report Type: Spontaneous
  Country: CN (occurrence: CN)
  Receive Date: 20250912
  Receipt Date: 20250912
  Transmission Date: 20251021
  Serious: Yes (Other)
  Sender: BAYER HEALTHCARE PHARMACEUTICALS INC.
  Company Number: CN-BAYER-2025A121413

PATIENT
  Age: 41 Year
  Sex: Male
  Weight: 61 kg

DRUGS (2)
  1. PRIMOVIST [Suspect]
     Active Substance: GADOXETATE DISODIUM
     Indication: Magnetic resonance imaging abdominal
     Route: 042
     Dates: start: 20250907, end: 20250907
  2. PRIMOVIST [Suspect]
     Active Substance: GADOXETATE DISODIUM
     Indication: Abdominal pain

REACTIONS (1)
  - Papule [Recovering/Resolving]

NARRATIVE: CASE EVENT DATE: 20250907
